FAERS Safety Report 10089364 (Version 1)
Quarter: 2014Q2

REPORT INFORMATION
  Report Type: Spontaneous
  Country: US (occurrence: None)
  Receive Date: 20140418
  Receipt Date: 20140418
  Transmission Date: 20141212
  Serious: Yes (Hospitalization)
  Sender: FDA-Public Use
  Company Number: None

PATIENT
  Age: 66 Year
  Sex: Male
  Weight: 93.2 kg

DRUGS (1)
  1. DENOSUMAB [Suspect]
     Indication: OSTEOPOROSIS
     Dosage: 1 ML OTHER  SQ
     Route: 058
     Dates: start: 20140213

REACTIONS (6)
  - Unresponsive to stimuli [None]
  - Tremor [None]
  - Hypocalcaemia [None]
  - Hypoaesthesia oral [None]
  - Hypoaesthesia [None]
  - Dysarthria [None]
